FAERS Safety Report 6019376-7 (Version None)
Quarter: 2008Q4

REPORT INFORMATION
  Report Type: 
  Country: None (occurrence: None)
  Receive Date: 20081224
  Receipt Date: 20081219
  Transmission Date: 20090506
  Serious: Yes (Other)
  Sender: FDA-Public Use
  Company Number: GR-ASTRAZENECA-2008SE05843

PATIENT

DRUGS (2)
  1. CRESTOR [Suspect]
     Indication: HYPERCHOLESTEROLAEMIA
     Route: 048
     Dates: start: 20081001, end: 20081001
  2. ANTI INFLAMMATORY THERAPY [Concomitant]

REACTIONS (2)
  - HAEMANGIOMA [None]
  - RHABDOMYOLYSIS [None]
